FAERS Safety Report 10638469 (Version 1)
Quarter: 2014Q4

REPORT INFORMATION
  Report Type: Spontaneous
  Country: AU (occurrence: AU)
  Receive Date: 20141208
  Receipt Date: 20141208
  Transmission Date: 20150529
  Serious: Yes (Hospitalization, Other)
  Sender: FDA-Public Use
  Company Number: AU-B.I. PHARMACEUTICALS,INC./RIDGEFIELD-2014-BI-58902GD

PATIENT
  Age: 84 Year
  Sex: Male

DRUGS (1)
  1. PRADAXA [Suspect]
     Active Substance: DABIGATRAN ETEXILATE MESYLATE
     Indication: ATRIAL FIBRILLATION
     Dosage: 300 MG
     Route: 065

REACTIONS (10)
  - Inguinal hernia strangulated [Recovered/Resolved]
  - Pyrexia [Unknown]
  - Rebound effect [Recovered/Resolved]
  - Renal impairment [Unknown]
  - Coagulopathy [Recovered/Resolved]
  - Hypotension [Unknown]
  - Tachycardia [Unknown]
  - Oliguria [Unknown]
  - Hepatic function abnormal [Unknown]
  - Intestinal ischaemia [Recovered/Resolved]
